FAERS Safety Report 10056037 (Version 2)
Quarter: 2014Q2

REPORT INFORMATION
  Report Type: Spontaneous
  Country: US (occurrence: US)
  Receive Date: 20140403
  Receipt Date: 20140425
  Transmission Date: 20141212
  Serious: Yes (Other)
  Sender: FDA-Public Use
  Company Number: US-JNJFOC-20140315304

PATIENT
  Sex: Female
  Weight: 62.14 kg

DRUGS (3)
  1. STELARA [Suspect]
     Indication: PSORIASIS
     Route: 058
     Dates: start: 2009, end: 201312
  2. TRIAMCINOLONE [Concomitant]
     Indication: PSORIASIS
     Route: 065
  3. KENALOG [Concomitant]
     Indication: PSORIASIS
     Route: 065

REACTIONS (1)
  - Anaplastic astrocytoma [Not Recovered/Not Resolved]
